FAERS Safety Report 7217472-X (Version None)
Quarter: 2011Q1

REPORT INFORMATION
  Report Type: 
  Country: None (occurrence: None)
  Receive Date: 20110110
  Receipt Date: 20110104
  Transmission Date: 20110831
  Serious: Yes (Hospitalization)
  Sender: FDA-Public Use
  Company Number: GB-AMGEN-GBRCT2010006454

PATIENT
  Sex: Male

DRUGS (20)
  1. LACTULOSE [Concomitant]
     Dosage: 5 MG, BID
     Dates: start: 20100101
  2. LOPERAMIDE [Concomitant]
     Dosage: 16 MG, QD
     Dates: start: 20100622
  3. DOCUSATE [Concomitant]
     Dosage: 100 MG, BID
     Dates: start: 20100101
  4. ZOPLICONE [Concomitant]
  5. CHLORAMPHENICOL [Concomitant]
     Dosage: UNK
     Route: 047
     Dates: start: 20101020
  6. SENNA                              /00142201/ [Concomitant]
     Dosage: 1.5 MG, BID
     Dates: start: 20100101
  7. MST                                /00036302/ [Concomitant]
     Dosage: 30 MG, BID
     Dates: start: 20101110
  8. LYMECYCLINE [Concomitant]
     Dosage: UNK
     Dates: start: 20101110
  9. CAPECITABINE [Suspect]
     Indication: OESOPHAGEAL CARCINOMA
     Dosage: UNK
     Dates: start: 20100616, end: 20101110
  10. ATENOLOL [Concomitant]
     Dosage: 100 MG, QD
     Dates: start: 20050101
  11. SIMVASTATIN [Concomitant]
     Dosage: 40 MG, QD
     Dates: start: 20050101
  12. DOMPERIDONE [Concomitant]
     Dosage: 20 MG, QD
     Dates: start: 20100622
  13. PANITUMUMAB [Suspect]
     Indication: OESOPHAGEAL CARCINOMA
     Dosage: UNK
     Dates: start: 20100616, end: 20101110
  14. IBUPROFEN [Concomitant]
     Dosage: 400 MG, UNK
     Dates: start: 20100801
  15. AMLODIPINE [Concomitant]
     Dosage: 5 MG, QD
     Dates: start: 20050101
  16. OXALIPLATIN [Suspect]
     Indication: OESOPHAGEAL CARCINOMA
     Dosage: UNK
     Dates: start: 20100616, end: 20101110
  17. LANSOPRAZOLE [Concomitant]
     Dosage: 30 MG, UNK
     Dates: start: 20100101
  18. DEXAMETHASONE [Concomitant]
     Dosage: 8 MG, BID
     Dates: start: 20100617
  19. EPIRUBICIN [Suspect]
     Indication: OESOPHAGEAL CARCINOMA
     Dosage: UNK
     Dates: start: 20100616, end: 20101110
  20. PYRIDOXINE HCL [Concomitant]
     Dosage: 50 MG, UNK
     Dates: start: 20101101

REACTIONS (5)
  - BLOOD POTASSIUM DECREASED [None]
  - BLOOD PHOSPHORUS DECREASED [None]
  - BLOOD CALCIUM DECREASED [None]
  - INFECTION [None]
  - BLOOD MAGNESIUM DECREASED [None]
